FAERS Safety Report 9266576 (Version 2)
Quarter: 2013Q3

REPORT INFORMATION
  Report Type: Report from Study
  Country: FR (occurrence: FR)
  Receive Date: 20130502
  Receipt Date: 20130705
  Transmission Date: 20140515
  Serious: Yes (Hospitalization)
  Sender: FDA-Public Use
  Company Number: PHHO2013FR005778

PATIENT
  Age: 12 Year
  Sex: Male

DRUGS (5)
  1. ZOLEDRONATE [Suspect]
     Indication: OSTEOSARCOMA
     Dosage: 3 MG, UNK
     Route: 042
     Dates: start: 20100624, end: 20101110
  2. METHOTREXATE [Suspect]
     Indication: OSTEOSARCOMA
     Dosage: 10 G, UNK
     Route: 042
     Dates: start: 20101029, end: 20110721
  3. IFOSFAMIDE [Concomitant]
     Indication: OSTEOSARCOMA
     Dosage: 14.6 G, UNK
     Route: 042
     Dates: start: 20101126
  4. IFOSFAMIDE [Concomitant]
     Dosage: 20.8 G, UNK
     Route: 042
     Dates: end: 20110503
  5. VEPESIDE [Concomitant]
     Indication: OSTEOSARCOMA
     Dosage: 360 MG, UNK
     Route: 042
     Dates: start: 20101126, end: 20110316

REACTIONS (2)
  - Device related infection [Recovered/Resolved]
  - Joint effusion [Unknown]
